FAERS Safety Report 16984397 (Version 1)
Quarter: 2019Q4

REPORT INFORMATION
  Report Type: Spontaneous
  Country: US (occurrence: US)
  Receive Date: 20190917
  Receipt Date: 20190917
  Transmission Date: 20200122
  Serious: No
  Sender: FDA-Public Use
  Company Number: None

PATIENT
  Age: 78 Year
  Sex: Female

DRUGS (3)
  1. FORTEO [Suspect]
     Active Substance: TERIPARATIDE
     Indication: OSTEOPOROSIS
  2. FORTEO [Suspect]
     Active Substance: TERIPARATIDE
     Indication: PSORIASIS
     Route: 058
     Dates: start: 201812
  3. FORTEO [Suspect]
     Active Substance: TERIPARATIDE
     Indication: ANKYLOSING SPONDYLITIS

REACTIONS (1)
  - Death [None]
